FAERS Safety Report 4467892-1 (Version None)
Quarter: 2004Q4

REPORT INFORMATION
  Report Type: 
  Country: None (occurrence: None)
  Receive Date: 20041001
  Receipt Date: 20040920
  Transmission Date: 20050328
  Serious: Yes (Life-Threatening, Hospitalization)
  Sender: FDA-Public Use
  Company Number: WAES 0409USA01614

PATIENT
  Age: 70 Year
  Sex: Male

DRUGS (2)
  1. COZAAR [Suspect]
  2. TELMISARTAN UNK [Suspect]

REACTIONS (5)
  - CONSTIPATION [None]
  - HYPERKALAEMIA [None]
  - HYPERMAGNESAEMIA [None]
  - HYPOKALAEMIA [None]
  - HYPONATRAEMIA [None]
